FAERS Safety Report 22010737 (Version 1)
Quarter: 2023Q1

REPORT INFORMATION
  Report Type: Spontaneous
  Country: None (occurrence: US)
  Receive Date: 20230220
  Receipt Date: 20230220
  Transmission Date: 20230417
  Serious: No
  Sender: FDA-Public Use
  Company Number: US-P+L Developments of Newyork Corporation-2138181

PATIENT

DRUGS (1)
  1. CLOTRIMAZOLE [Suspect]
     Active Substance: CLOTRIMAZOLE
     Indication: Fungal infection
     Route: 065

REACTIONS (5)
  - Drug ineffective [Unknown]
  - Burning sensation [Unknown]
  - Pruritus [Unknown]
  - Condition aggravated [Unknown]
  - Swelling [Unknown]
